FAERS Safety Report 20612931 (Version 1)
Quarter: 2022Q1

REPORT INFORMATION
  Report Type: Spontaneous
  Country: FR (occurrence: FR)
  Receive Date: 20220318
  Receipt Date: 20220318
  Transmission Date: 20220423
  Serious: Yes (Other)
  Sender: FDA-Public Use
  Company Number: FR-AUROBINDO-AUR-APL-2022-006820

PATIENT
  Sex: Female

DRUGS (4)
  1. TRULICITY [Suspect]
     Active Substance: DULAGLUTIDE
     Indication: Diabetes mellitus
     Dosage: 1 DOSAGE FORM, EVERY WEEK
     Route: 065
  2. POLYETHYLENE GLYCOL 4000 [Suspect]
     Active Substance: POLYETHYLENE GLYCOL 4000
     Indication: Constipation
     Dosage: UNK, UNKNOWN,  (1 TO 2 SACHETS PER DAY)
     Route: 048
     Dates: start: 202011, end: 202102
  3. ATORVASTATIN [Concomitant]
     Active Substance: ATORVASTATIN
     Indication: Blood cholesterol
     Dosage: 1 DOSAGE FORM, ONCE A DAY
     Route: 048
  4. REPAGLINIDE [Concomitant]
     Active Substance: REPAGLINIDE
     Indication: Diabetes mellitus
     Dosage: 3 DOSAGE FORM, ONCE A DAY
     Route: 048

REACTIONS (2)
  - Diabetes mellitus inadequate control [Recovered/Resolved]
  - Feeling abnormal [Recovered/Resolved]
